FAERS Safety Report 8525283-8 (Version None)
Quarter: 2012Q3

REPORT INFORMATION
  Report Type: 
  Country: None (occurrence: None)
  Receive Date: 20120720
  Receipt Date: 20120717
  Transmission Date: 20120928
  Serious: Yes (Hospitalization, Other)
  Sender: FDA-Public Use
  Company Number: PHHO2010ES02722

PATIENT
  Sex: Male
  Weight: 75.5 kg

DRUGS (5)
  1. ATARAX [Concomitant]
  2. PEITEL [Concomitant]
  3. GILENYA [Suspect]
     Indication: MULTIPLE SCLEROSIS
     Dosage: 1.25 MG, QD
     Route: 048
     Dates: start: 20090312, end: 20100217
  4. IBUPROFEN [Concomitant]
  5. ACETAMINOPHEN [Concomitant]

REACTIONS (3)
  - CEREBRAL HAEMATOMA [None]
  - BRAIN OEDEMA [None]
  - CENTRAL NERVOUS SYSTEM LESION [None]
